FAERS Safety Report 15999437 (Version 2)
Quarter: 2019Q1

REPORT INFORMATION
  Report Type: Spontaneous
  Country: US (occurrence: US)
  Receive Date: 20190225
  Receipt Date: 20190228
  Transmission Date: 20190418
  Serious: No
  Sender: FDA-Public Use
  Company Number: US-PFIZER INC-2019080387

PATIENT
  Age: 51 Year
  Sex: Female
  Weight: 62.14 kg

DRUGS (3)
  1. ADVIL [Suspect]
     Active Substance: IBUPROFEN
     Indication: BACK PAIN
     Dosage: UNK
     Dates: start: 20190211
  2. ADVIL [Suspect]
     Active Substance: IBUPROFEN
     Indication: PAIN IN EXTREMITY
     Dosage: 200 MG, SINGLE
     Route: 048
     Dates: start: 20190219, end: 20190219
  3. ADVIL [Suspect]
     Active Substance: IBUPROFEN
     Dosage: 2 DF, UNK
     Route: 048
     Dates: start: 20190218, end: 20190218

REACTIONS (3)
  - Eye swelling [Not Recovered/Not Resolved]
  - Sensation of foreign body [Not Recovered/Not Resolved]
  - Nausea [Not Recovered/Not Resolved]

NARRATIVE: CASE EVENT DATE: 20190219
